FAERS Safety Report 25484679 (Version 1)
Quarter: 2025Q2

REPORT INFORMATION
  Report Type: Spontaneous
  Country: US (occurrence: None)
  Receive Date: 20250627
  Receipt Date: 20250627
  Transmission Date: 20250716
  Serious: Yes (Other)
  Sender: FDA-CTU
  Company Number: None

PATIENT
  Age: 55 Year
  Sex: Male

DRUGS (3)
  1. DUPIXENT [Suspect]
     Active Substance: DUPILUMAB
  2. CLONAZEPAM [Concomitant]
     Active Substance: CLONAZEPAM
  3. DULOXETINE [Concomitant]
     Active Substance: DULOXETINE

REACTIONS (7)
  - Drug hypersensitivity [None]
  - Dizziness [None]
  - Suffocation feeling [None]
  - Dyspnoea [None]
  - Chest discomfort [None]
  - Nervousness [None]
  - Post procedural complication [None]

NARRATIVE: CASE EVENT DATE: 20250627
